FAERS Safety Report 5705471-6 (Version None)
Quarter: 2008Q2

REPORT INFORMATION
  Report Type: 
  Country: None (occurrence: None)
  Receive Date: 20080411
  Receipt Date: 20080403
  Transmission Date: 20081010
  Serious: Yes (Other)
  Sender: FDA-Public Use
  Company Number: 2008007523

PATIENT
  Sex: Female

DRUGS (11)
  1. LISTERINE WHITENING QUICK DISSOLVING STRIPS (NO ACTIVE INGREDIENT) [Suspect]
     Indication: DENTAL CARE
     Dosage: 2 STRIPS 2 TIMES A DAY (2 IN 1 D), ORAL
     Route: 048
     Dates: start: 20080318
  2. ASPIRIN [Concomitant]
  3. LISINOPRIL [Concomitant]
  4. PREDNISONE TAB [Concomitant]
  5. SIMVASTATIN [Concomitant]
  6. OMEPRAZOLE [Concomitant]
  7. METOPROLOL TARTRATE [Concomitant]
  8. FOLIC ACID [Concomitant]
  9. CALCIUM WITH VITAMIN D (CALCIUM PHOSPHATE, CALCIUM SODIUM LACTATE, ERG [Concomitant]
  10. METHOTREXATE [Concomitant]
  11. HYDROCHLOROTHIAZIDE [Concomitant]

REACTIONS (3)
  - APHTHOUS STOMATITIS [None]
  - ORAL DISCOMFORT [None]
  - PHARMACEUTICAL PRODUCT COMPLAINT [None]
